FAERS Safety Report 9831902 (Version 1)
Quarter: 2014Q1

REPORT INFORMATION
  Report Type: Spontaneous
  Country: US (occurrence: US)
  Receive Date: 20140121
  Receipt Date: 20140121
  Transmission Date: 20141002
  Serious: No
  Sender: FDA-Public Use
  Company Number: US-PFIZER INC-2014014884

PATIENT
  Age: 70 Year
  Sex: Female
  Weight: 61.2 kg

DRUGS (2)
  1. PREMARIN [Suspect]
     Indication: HORMONE REPLACEMENT THERAPY
     Dosage: 1.25 MG, 1X/DAY
  2. PREMARIN [Suspect]
     Indication: HOT FLUSH

REACTIONS (4)
  - Drug ineffective [Unknown]
  - Malaise [Unknown]
  - Stress [Unknown]
  - Migraine [Unknown]
